FAERS Safety Report 7101687-5 (Version None)
Quarter: 2010Q4

REPORT INFORMATION
  Report Type: 
  Country: None (occurrence: None)
  Receive Date: 20101115
  Receipt Date: 20101101
  Transmission Date: 20110411
  Serious: Yes (Hospitalization)
  Sender: FDA-Public Use
  Company Number: US-BAYER-201021143NA

PATIENT
  Age: 38 Year
  Sex: Female
  Weight: 49 kg

DRUGS (15)
  1. YAZ [Suspect]
     Indication: MENSTRUAL CYCLE MANAGEMENT
     Dosage: AS USED DOSE: UNK
     Route: 048
     Dates: start: 20080311, end: 20090801
  2. YASMIN [Suspect]
     Indication: MENSTRUAL CYCLE MANAGEMENT
     Dosage: AS USED DOSE: UNK
     Route: 048
     Dates: start: 20080311, end: 20090801
  3. OCELLA [Suspect]
     Indication: PRODUCT USED FOR UNKNOWN INDICATION
     Dosage: AS USED DOSE: UNK
     Route: 065
     Dates: start: 20080301
  4. SEASONIQUE [Concomitant]
     Dates: start: 20020101, end: 20050101
  5. ZOMIG [Concomitant]
     Dates: start: 20020101
  6. TREXIMET [Concomitant]
     Dates: start: 20020101
  7. MOTRIN [Concomitant]
     Indication: BACK PAIN
     Dates: start: 19900101
  8. ACYCLOVIR SODIUM [Concomitant]
     Indication: HERPES ZOSTER
  9. ACYCLOVIR SODIUM [Concomitant]
     Dates: start: 20080709, end: 20080716
  10. LEXAPRO [Concomitant]
     Indication: POSTPARTUM DEPRESSION
     Dosage: TOTAL DAILY DOSE: 10 MG  UNIT DOSE: 10 MG
     Route: 048
     Dates: start: 20081230, end: 20090324
  11. KAPIDEX [Concomitant]
     Dosage: TOTAL DAILY DOSE: 60 MG  UNIT DOSE: 60 MG
     Route: 048
  12. PERCOCET [Concomitant]
     Dosage: 1-2 TABS EVERY 4-6 HOURS
     Dates: start: 20090401, end: 20090623
  13. ACETAMINOPHEN [Concomitant]
     Indication: BACK PAIN
  14. TUMS [Concomitant]
     Indication: ABDOMINAL PAIN UPPER
  15. ZOVIA 1/35E-21 [Concomitant]

REACTIONS (5)
  - ABDOMINAL PAIN LOWER [None]
  - ABDOMINAL PAIN UPPER [None]
  - BILIARY COLIC [None]
  - BILIARY DYSKINESIA [None]
  - UTERINE ENLARGEMENT [None]
